FAERS Safety Report 13059326 (Version 1)
Quarter: 2016Q4

REPORT INFORMATION
  Report Type: Spontaneous
  Country: PL (occurrence: PL)
  Receive Date: 20161223
  Receipt Date: 20161223
  Transmission Date: 20170207
  Serious: Yes (Death)
  Sender: FDA-Public Use
  Company Number: PL-B.I. PHARMACEUTICALS,INC./RIDGEFIELD-2016-BI-086405

PATIENT
  Age: 77 Year
  Sex: Male
  Weight: 70 kg

DRUGS (2)
  1. PRAXBIND [Suspect]
     Active Substance: IDARUCIZUMAB
     Indication: GASTROINTESTINAL HAEMORRHAGE
     Route: 065
  2. PRAXBIND [Suspect]
     Active Substance: IDARUCIZUMAB
     Indication: SURGERY

REACTIONS (2)
  - Blood creatinine abnormal [Unknown]
  - Multiple organ dysfunction syndrome [Fatal]

NARRATIVE: CASE EVENT DATE: 20161115
